FAERS Safety Report 5004397-3 (Version None)
Quarter: 2006Q2

REPORT INFORMATION
  Report Type: 
  Country: None (occurrence: None)
  Receive Date: 20060517
  Receipt Date: 20060504
  Transmission Date: 20061013
  Serious: Yes (Hospitalization)
  Sender: FDA-Public Use
  Company Number: US-AMGEN-STX178557

PATIENT
  Sex: Male

DRUGS (1)
  1. ENBREL [Suspect]
     Indication: PSORIASIS
     Dates: start: 20050801, end: 20050801

REACTIONS (4)
  - ACQUIRED DIAPHRAGMATIC EVENTRATION [None]
  - CHRONIC OBSTRUCTIVE PULMONARY DISEASE [None]
  - LYMPHOMA [None]
  - PLEURAL EFFUSION [None]
